FAERS Safety Report 24578697 (Version 2)
Quarter: 2024Q4

REPORT INFORMATION
  Report Type: Spontaneous
  Country: ES (occurrence: ES)
  Receive Date: 20241105
  Receipt Date: 20241217
  Transmission Date: 20250114
  Serious: Yes (Other)
  Sender: Unknown Manufacturer
  Company Number: ES-MENARINI-ES-MEN-109525

PATIENT

DRUGS (4)
  1. ORITAVANCIN [Suspect]
     Active Substance: ORITAVANCIN
     Indication: Diabetic foot
     Dosage: 800 MILLIGRAM, 1 IN EVERY 24 HOUR (A BOOSTER DOSE EVERY 7 DAYS)
     Route: 042
     Dates: start: 20240816, end: 20240816
  2. ORITAVANCIN [Suspect]
     Active Substance: ORITAVANCIN
     Indication: Infected skin ulcer
  3. CIPROFLOXACIN [Concomitant]
     Active Substance: CIPROFLOXACIN
     Indication: Gram stain negative
     Dosage: 500 MILLIGRAM
     Route: 048
     Dates: start: 20240809
  4. CIPROFLOXACIN [Concomitant]
     Active Substance: CIPROFLOXACIN
     Indication: Infected skin ulcer

REACTIONS (8)
  - Presyncope [Recovered/Resolved]
  - Hypotension [Recovered/Resolved]
  - Dyspnoea [Recovered/Resolved]
  - Pyrexia [Recovered/Resolved]
  - Vomiting [Recovered/Resolved]
  - Tachycardia [Recovered/Resolved]
  - Prescribed underdose [Recovered/Resolved]
  - Product use in unapproved indication [Recovered/Resolved]

NARRATIVE: CASE EVENT DATE: 20240816
